FAERS Safety Report 4504027-0 (Version None)
Quarter: 2004Q3

REPORT INFORMATION
  Report Type: 
  Country: None (occurrence: None)
  Receive Date: 20040927
  Receipt Date: 20040628
  Transmission Date: 20050211
  Serious: No
  Sender: FDA-Public Use
  Company Number: USA040671382

PATIENT
  Age: 14 Year
  Sex: Male
  Weight: 38 kg

DRUGS (3)
  1. STRATTERA [Suspect]
     Indication: ATTENTION DEFICIT/HYPERACTIVITY DISORDER
     Dosage: 60 MG/1 DAY
     Dates: start: 20040601
  2. METADATE (METHYLPHENIDATE HYDROCHLORIDE) [Concomitant]
  3. ZOLOFT [Concomitant]

REACTIONS (3)
  - FOREIGN BODY TRAUMA [None]
  - PHARYNGOLARYNGEAL PAIN [None]
  - PRESCRIBED OVERDOSE [None]
